FAERS Safety Report 8227516-4 (Version None)
Quarter: 2012Q1

REPORT INFORMATION
  Report Type: 
  Country: None (occurrence: None)
  Receive Date: 20120322
  Receipt Date: 20120313
  Transmission Date: 20120608
  Serious: No
  Sender: FDA-Public Use
  Company Number: US-B.I. PHARMACEUTICALS,INC./RIDGEFIELD-2012-BP-04790BP

PATIENT
  Age: 65 Year
  Sex: Male

DRUGS (3)
  1. BENAZEPRIL HYDROCHLORIDE [Concomitant]
     Indication: HYPERTENSION
  2. PRADAXA [Suspect]
     Indication: ATRIAL FIBRILLATION
     Dosage: 300 MG
     Route: 048
  3. CELEBREX [Concomitant]
     Indication: ARTHRITIS

REACTIONS (1)
  - ARTHRALGIA [None]
